FAERS Safety Report 14942887 (Version 1)
Quarter: 2018Q2

REPORT INFORMATION
  Report Type: Spontaneous
  Country: FR (occurrence: FR)
  Receive Date: 20180528
  Receipt Date: 20180528
  Transmission Date: 20180711
  Serious: Yes (Other)
  Sender: FDA-Public Use
  Company Number: FR-MERCK KGAA-2048535

PATIENT
  Age: 58 Year
  Sex: Female

DRUGS (1)
  1. NOVOTHYROX [Suspect]
     Active Substance: LEVOTHYROXINE SODIUM
     Indication: POST PROCEDURAL HYPOTHYROIDISM
     Dates: start: 20171114

REACTIONS (12)
  - Disturbance in attention [None]
  - Depression [None]
  - Irritability [None]
  - Muscle spasms [None]
  - Insomnia [None]
  - Musculoskeletal pain [None]
  - Headache [None]
  - Stress [None]
  - Emotional distress [None]
  - Postmenopausal haemorrhage [None]
  - Back pain [None]
  - Asthenia [None]

NARRATIVE: CASE EVENT DATE: 201801
